FAERS Safety Report 9799772 (Version 3)
Quarter: 2015Q3

REPORT INFORMATION
  Report Type: Spontaneous
  Country: US (occurrence: US)
  Receive Date: 20140106
  Receipt Date: 20150806
  Transmission Date: 20151125
  Serious: No
  Sender: FDA-Public Use
  Company Number: US-GILEAD-2010-0032802

PATIENT
  Age: 71 Year
  Sex: Female
  Weight: 111.58 kg

DRUGS (18)
  1. ZOCOR [Concomitant]
     Active Substance: SIMVASTATIN
  2. PROBIOTIC COMPLEX [Concomitant]
  3. POTASSIUM CHLORIDE. [Concomitant]
     Active Substance: POTASSIUM CHLORIDE
  4. LASIX [Concomitant]
     Active Substance: FUROSEMIDE
  5. OMEGA 3 [Concomitant]
     Active Substance: OMEGA-3 FATTY ACIDS
  6. HYDROCODONE/ACETAMINOPHEN [Concomitant]
     Active Substance: ACETAMINOPHEN\HYDROCODONE
  7. EXCEDRIN EXTRA STRENGTH [Concomitant]
     Active Substance: ACETAMINOPHEN\ASPIRIN\CAFFEINE
  8. LORTAB [Concomitant]
     Active Substance: ACETAMINOPHEN\HYDROCODONE BITARTRATE
  9. IRON [Concomitant]
     Active Substance: IRON
  10. PRILOSEC OTC [Concomitant]
     Active Substance: OMEPRAZOLE MAGNESIUM
  11. FLUOXETINE [Concomitant]
     Active Substance: FLUOXETINE\FLUOXETINE HYDROCHLORIDE
  12. OYST CAL D [Concomitant]
  13. HYDROCHLOROTHIAZIDE/TRIAMTERENE [Concomitant]
  14. VITAMIN C [Concomitant]
     Active Substance: ASCORBIC ACID
  15. MULTIPLE MINERALS [Concomitant]
  16. DAILY VITE [Concomitant]
     Active Substance: VITAMINS
  17. LETAIRIS [Suspect]
     Active Substance: AMBRISENTAN
     Indication: PULMONARY ARTERIAL HYPERTENSION
     Route: 048
     Dates: start: 20071008
  18. NORVASC [Concomitant]
     Active Substance: AMLODIPINE BESYLATE

REACTIONS (1)
  - Peripheral swelling [Unknown]
